FAERS Safety Report 4530998-2 (Version None)
Quarter: 2004Q4

REPORT INFORMATION
  Report Type: 
  Country: None (occurrence: None)
  Receive Date: 20041217
  Receipt Date: 20040130
  Transmission Date: 20050328
  Serious: Yes (Hospitalization, Disabling)
  Sender: FDA-Public Use
  Company Number: US-MERCK-0402USA00065

PATIENT
  Age: 53 Year
  Sex: Male
  Weight: 84 kg

DRUGS (7)
  1. VIOXX [Suspect]
     Indication: BACK PAIN
     Route: 048
     Dates: start: 20000414
  2. VIOXX [Suspect]
     Route: 048
     Dates: end: 20011218
  3. VIOXX [Suspect]
     Indication: INTERVERTEBRAL DISC DISORDER
     Route: 048
     Dates: start: 20000414
  4. VIOXX [Suspect]
     Route: 048
     Dates: end: 20011218
  5. GLYBURIDE [Concomitant]
     Indication: DIABETES MELLITUS NON-INSULIN-DEPENDENT
     Route: 065
  6. FLONASE [Concomitant]
     Route: 065
  7. ZYRTEC [Concomitant]
     Route: 065

REACTIONS (15)
  - BACK INJURY [None]
  - BURSITIS [None]
  - EMOTIONAL DISTRESS [None]
  - GASTROENTERITIS VIRAL [None]
  - INTERVERTEBRAL DISC DEGENERATION [None]
  - INTERVERTEBRAL DISC PROTRUSION [None]
  - LACUNAR INFARCTION [None]
  - LIBIDO DECREASED [None]
  - NERVE INJURY [None]
  - PAIN IN EXTREMITY [None]
  - RHINITIS ALLERGIC [None]
  - SEBACEOUS HYPERPLASIA [None]
  - SOMNOLENCE [None]
  - SPINAL COLUMN STENOSIS [None]
  - STOMACH DISCOMFORT [None]
